FAERS Safety Report 6691589-0 (Version None)
Quarter: 2010Q2

REPORT INFORMATION
  Report Type: 
  Country: None (occurrence: None)
  Receive Date: 20100422
  Receipt Date: 20100331
  Transmission Date: 20101027
  Serious: No
  Sender: FDA-Public Use
  Company Number: US-B.I. PHARMACEUTICALS,INC./RIDGEFIELD-2010-BP-02305BP

PATIENT
  Age: 69 Year
  Sex: Female

DRUGS (4)
  1. AGGRENOX [Suspect]
     Indication: TRANSIENT ISCHAEMIC ATTACK
     Route: 048
     Dates: start: 20100204
  2. AMLODIPINE [Concomitant]
     Indication: HYPERTENSION
  3. EFFEXOR [Concomitant]
     Indication: DEPRESSION
  4. LISINOPRIL [Concomitant]
     Indication: HYPERTENSION

REACTIONS (6)
  - ARTHRALGIA [None]
  - ERYTHEMA [None]
  - FREQUENT BOWEL MOVEMENTS [None]
  - MYALGIA [None]
  - OEDEMA PERIPHERAL [None]
  - TINNITUS [None]
